FAERS Safety Report 7183312-0 (Version None)
Quarter: 2010Q4

REPORT INFORMATION
  Report Type: 
  Country: None (occurrence: None)
  Receive Date: 20101222
  Receipt Date: 20100917
  Transmission Date: 20110411
  Serious: No
  Sender: FDA-Public Use
  Company Number: A0881697A

PATIENT
  Age: 43 Year
  Sex: Female

DRUGS (2)
  1. FLONASE [Suspect]
     Dosage: 1PUFF PER DAY
     Route: 045
  2. INFLUENZA VIRUS VACCINE [Suspect]
     Indication: PROPHYLAXIS
     Route: 065

REACTIONS (2)
  - HYPERAESTHESIA [None]
  - PRURITUS [None]
